FAERS Safety Report 11608242 (Version 1)
Quarter: 2015Q4

REPORT INFORMATION
  Report Type: Spontaneous
  Country: JP (occurrence: JP)
  Receive Date: 20151007
  Receipt Date: 20151007
  Transmission Date: 20160304
  Serious: Yes (Hospitalization, Other)
  Sender: FDA-Public Use
  Company Number: JP-BAYER-2015-435325

PATIENT
  Age: 27 Year
  Sex: Female

DRUGS (1)
  1. NIFEDIPINE. [Suspect]
     Active Substance: NIFEDIPINE
     Dosage: UNK
     Route: 048

REACTIONS (5)
  - Reversible cerebral vasoconstriction syndrome [Recovering/Resolving]
  - Subdural haematoma [None]
  - Headache [None]
  - Tinnitus [None]
  - Maternal exposure during pregnancy [Recovered/Resolved]
